FAERS Safety Report 11493143 (Version 3)
Quarter: 2015Q3

REPORT INFORMATION
  Report Type: Report from Study
  Country: US (occurrence: US)
  Receive Date: 20150911
  Receipt Date: 20150928
  Transmission Date: 20151125
  Serious: No
  Sender: FDA-Public Use
  Company Number: PHEH2015US006689

PATIENT
  Sex: Female
  Weight: 56.69 kg

DRUGS (15)
  1. PROVIGIL//CHORIONIC GONADOTROPHIN [Concomitant]
     Indication: SLEEP APNOEA SYNDROME
  2. BENICAR [Concomitant]
     Active Substance: OLMESARTAN MEDOXOMIL
     Indication: PRODUCT USED FOR UNKNOWN INDICATION
     Dosage: UNK UNK, QD
     Route: 065
  3. DIAZEPAM. [Concomitant]
     Active Substance: DIAZEPAM
     Indication: PRODUCT USED FOR UNKNOWN INDICATION
     Dosage: 1 DF (1 TABLET), QHS
     Route: 065
  4. BUDEPRION [Concomitant]
     Active Substance: BUPROPION HYDROCHLORIDE
     Indication: PRODUCT USED FOR UNKNOWN INDICATION
     Dosage: 1 DF (300 MG), QD
     Route: 065
  5. PROVIGIL//CHORIONIC GONADOTROPHIN [Concomitant]
     Indication: MULTIPLE SCLEROSIS
     Dosage: 1 DF, PRN
     Route: 065
  6. ASPIRIN. [Concomitant]
     Active Substance: ASPIRIN
     Indication: PRODUCT USED FOR UNKNOWN INDICATION
     Dosage: 81 MG, QD
     Route: 065
  7. MIRALAX [Concomitant]
     Active Substance: POLYETHYLENE GLYCOL 3350
     Indication: PRODUCT USED FOR UNKNOWN INDICATION
     Dosage: UNK UNK, PRN
     Route: 065
  8. GILENYA [Suspect]
     Active Substance: FINGOLIMOD HYDROCHLORIDE
     Indication: MULTIPLE SCLEROSIS
     Dosage: 0.5 MG, QD
     Route: 048
     Dates: start: 20150331
  9. PROVIGIL//CHORIONIC GONADOTROPHIN [Concomitant]
     Indication: FATIGUE
  10. VARICELLA ZOSTER H [Suspect]
     Active Substance: VARICELLA-ZOSTER VIRUS STRAIN OKA/MERCK LIVE ANTIGEN
     Indication: IMMUNE SYSTEM DISORDER
     Route: 065
  11. LIPITOR [Concomitant]
     Active Substance: ATORVASTATIN CALCIUM
     Indication: PRODUCT USED FOR UNKNOWN INDICATION
     Dosage: 1 DF (1 TABLET), QD
     Route: 065
  12. MEDROL [Concomitant]
     Active Substance: METHYLPREDNISOLONE
     Indication: PRODUCT USED FOR UNKNOWN INDICATION
     Dosage: 4 MG, UNK
     Route: 065
  13. CALCIUM [Concomitant]
     Active Substance: CALCIUM
     Indication: PRODUCT USED FOR UNKNOWN INDICATION
     Dosage: UNK UNK, QD
     Route: 065
  14. OMEGA-3                            /01168901/ [Concomitant]
     Indication: PRODUCT USED FOR UNKNOWN INDICATION
     Route: 065
  15. BACLOFEN. [Concomitant]
     Active Substance: BACLOFEN
     Indication: MUSCLE SPASTICITY
     Dosage: 20 MG, QD
     Route: 065

REACTIONS (11)
  - Spinal osteoarthritis [Unknown]
  - Back pain [Recovered/Resolved]
  - Paraesthesia [Unknown]
  - Discomfort [Unknown]
  - Blood chloride decreased [Unknown]
  - Pain [Unknown]
  - Somnolence [Recovered/Resolved]
  - Alopecia [Unknown]
  - Band sensation [Not Recovered/Not Resolved]
  - Rash [Unknown]
  - Sinusitis [Not Recovered/Not Resolved]
